FAERS Safety Report 7405230-2 (Version None)
Quarter: 2011Q2

REPORT INFORMATION
  Report Type: 
  Country: None (occurrence: None)
  Receive Date: 20110404
  Receipt Date: 20110321
  Transmission Date: 20111010
  Serious: Yes (Other)
  Sender: FDA-Public Use
  Company Number: 2008EN000193

PATIENT
  Age: 67 Year
  Sex: Male

DRUGS (2)
  1. ABELCET [Suspect]
     Indication: FUNGAL INFECTION
     Dosage: 500 MG;QD;IV
     Route: 042
     Dates: start: 20080101
  2. PIRITON [Concomitant]

REACTIONS (6)
  - TACHYCARDIA [None]
  - FEELING COLD [None]
  - HYPERTENSION [None]
  - TACHYPNOEA [None]
  - RASH [None]
  - CHILLS [None]
